FAERS Safety Report 17565089 (Version 1)
Quarter: 2020Q1

REPORT INFORMATION
  Report Type: Spontaneous
  Country: US (occurrence: US)
  Receive Date: 20200319
  Receipt Date: 20200319
  Transmission Date: 20200409
  Serious: No
  Sender: FDA-Public Use
  Company Number: None

PATIENT
  Age: 27 Year
  Sex: Female
  Weight: 73.8 kg

DRUGS (6)
  1. LEXAPRO [Suspect]
     Active Substance: ESCITALOPRAM OXALATE
  2. CLONAZEPAM. [Suspect]
     Active Substance: CLONAZEPAM
  3. CITALOPRAM HBR 10MG TABLET [Suspect]
     Active Substance: CITALOPRAM HYDROBROMIDE
     Indication: ANXIETY
     Dosage: ?          QUANTITY:1 TABLET(S);?
     Route: 048
     Dates: start: 20200302, end: 20200318
  4. CITALOPRAM HBR 10MG TABLET [Suspect]
     Active Substance: CITALOPRAM HYDROBROMIDE
     Indication: PANIC ATTACK
     Dosage: ?          QUANTITY:1 TABLET(S);?
     Route: 048
     Dates: start: 20200302, end: 20200318
  5. BUSPIRONE [Suspect]
     Active Substance: BUSPIRONE HYDROCHLORIDE
     Indication: ANXIETY
     Dosage: ?          QUANTITY:1 TABLET(S);?
     Route: 048
     Dates: start: 20200215, end: 20200227
  6. LORAZEPAM. [Suspect]
     Active Substance: LORAZEPAM

REACTIONS (11)
  - Fatigue [None]
  - Merycism [None]
  - Insomnia [None]
  - Drug ineffective [None]
  - Withdrawal syndrome [None]
  - Suicidal ideation [None]
  - Anxiety [None]
  - Hallucination [None]
  - Panic attack [None]
  - Therapy cessation [None]
  - Feeling jittery [None]

NARRATIVE: CASE EVENT DATE: 20200314
